FAERS Safety Report 10563779 (Version 4)
Quarter: 2015Q1

REPORT INFORMATION
  Report Type: Spontaneous
  Country: US (occurrence: US)
  Receive Date: 20141104
  Receipt Date: 20150127
  Transmission Date: 20150720
  Serious: No
  Sender: FDA-Public Use
  Company Number: US-GLAXOSMITHKLINE-US2014GSK015025

PATIENT
  Age: 2 Year
  Sex: Male

DRUGS (4)
  1. CEFTIN [Suspect]
     Active Substance: CEFUROXIME AXETIL
     Dosage: UNK
  2. CEFTIN [Suspect]
     Active Substance: CEFUROXIME AXETIL
     Indication: BRONCHITIS
     Dosage: 3.75 ML, BID
     Route: 048
     Dates: start: 20140819, end: 20140822
  3. CEFTIN [Suspect]
     Active Substance: CEFUROXIME AXETIL
     Indication: IMPETIGO
     Dosage: UNK
  4. BUDESONIDE NEBULIZER [Concomitant]
     Active Substance: BUDESONIDE

REACTIONS (3)
  - Product quality issue [Recovered/Resolved]
  - Overdose [Recovered/Resolved]
  - Drug ineffective [Recovered/Resolved]

NARRATIVE: CASE EVENT DATE: 201408
